FAERS Safety Report 8340895-2 (Version None)
Quarter: 2012Q2

REPORT INFORMATION
  Report Type: 
  Country: None (occurrence: None)
  Receive Date: 20120507
  Receipt Date: 20120503
  Transmission Date: 20120825
  Serious: Yes (Hospitalization, Other)
  Sender: FDA-Public Use
  Company Number: PHHY2012NL010565

PATIENT
  Sex: Male

DRUGS (8)
  1. BLOOD TRANSFUSION, AUXILIARY PRODUCTS [Concomitant]
     Indication: HAEMOGLOBIN DECREASED
     Dosage: 2 BAGS
  2. ZOMETA [Suspect]
     Dosage: 4 MG/100ML,1X PER 28 DAYS
     Dates: start: 20120109
  3. ZYTIGA [Concomitant]
  4. ZOMETA [Suspect]
     Dosage: 4 MG/100ML,1X PER 28 DAYS
     Dates: start: 20120405
  5. ZOMETA [Suspect]
     Dosage: 4 MG/100ML,1X PER 28 DAYS
     Dates: start: 20120503
  6. ANTIBIOTICS [Concomitant]
  7. ZOMETA [Suspect]
     Indication: PROSTATE CANCER METASTATIC
     Dosage: 4 MG/100ML, 1X PER 28 DAYS
     Dates: start: 20101013
  8. ZOMETA [Suspect]
     Dosage: 4 MG/100ML,1X PER 28 DAYS
     Dates: start: 20120206

REACTIONS (7)
  - PROSTATIC SPECIFIC ANTIGEN INCREASED [None]
  - OSTEOGENESIS IMPERFECTA [None]
  - HAEMOGLOBIN DECREASED [None]
  - PNEUMONIA [None]
  - METASTASES TO PELVIS [None]
  - ANAEMIA [None]
  - METASTASES TO BONE [None]
